FAERS Safety Report 6548084-9 (Version None)
Quarter: 2010Q1

REPORT INFORMATION
  Report Type: 
  Country: None (occurrence: None)
  Receive Date: 20100124
  Receipt Date: 20091215
  Transmission Date: 20100710
  Serious: Yes (Hospitalization)
  Sender: FDA-Public Use
  Company Number: US-ALEXION-A200901006

PATIENT
  Sex: Male

DRUGS (12)
  1. SOLIRIS [Suspect]
     Indication: PAROXYSMAL NOCTURNAL HAEMOGLOBINURIA
     Dosage: 600 MG, QWK
     Route: 042
     Dates: start: 20071112, end: 20071203
  2. SOLIRIS [Suspect]
     Dosage: 900 MG, Q2WK
     Route: 042
     Dates: start: 20071212, end: 20090707
  3. SOLIRIS [Suspect]
     Dosage: 600 MG, UNK
     Route: 042
     Dates: start: 20090916
  4. ATIVAN [Concomitant]
     Dosage: UNK
     Route: 048
  5. PREDNISONE [Concomitant]
     Dosage: UNK
  6. PROTONIX                           /01263201/ [Concomitant]
     Dosage: UNK
     Route: 048
  7. SODIUM BICARBONATE [Concomitant]
     Dosage: 325 MG, TID
     Route: 048
  8. MULTIVITAMIN                       /00831701/ [Concomitant]
     Dosage: UNK
  9. CRANBERRY                          /01512301/ [Concomitant]
     Dosage: UNK
     Route: 048
  10. SAW PALMETTO                       /00833501/ [Concomitant]
     Dosage: UNK
     Route: 048
  11. VITAMIN C                          /00008001/ [Concomitant]
     Dosage: UNK
     Route: 048
  12. FISH OIL [Concomitant]
     Dosage: UNK
     Route: 048

REACTIONS (2)
  - ANAEMIA [None]
  - NASOPHARYNGITIS [None]
